FAERS Safety Report 6418219-7 (Version None)
Quarter: 2009Q4

REPORT INFORMATION
  Report Type: 
  Country: None (occurrence: None)
  Receive Date: 20091028
  Receipt Date: 20091026
  Transmission Date: 20100525
  Serious: Yes (Death)
  Sender: FDA-Public Use
  Company Number: US-GILEAD-2009-0024821

PATIENT
  Sex: Female
  Weight: 51.756 kg

DRUGS (26)
  1. LETAIRIS [Suspect]
     Indication: PULMONARY ARTERIAL HYPERTENSION
     Route: 048
     Dates: start: 20080806, end: 20091012
  2. NORVASC [Concomitant]
  3. WARFARIN SODIUM [Concomitant]
  4. PROTONIX [Concomitant]
  5. FUROSEMIDE [Concomitant]
  6. HYDROCHLOROTHIAZIDE [Concomitant]
  7. REVATIO [Concomitant]
  8. OXYGEN [Concomitant]
  9. ALBUTEROL SULFATE AUTOHALER [Concomitant]
  10. VENTOLIN [Concomitant]
  11. ATROVENT [Concomitant]
  12. ADVAIR 250-50 DISCUS [Concomitant]
  13. ZYRTEC [Concomitant]
  14. SOLU-MEDROL [Concomitant]
  15. ZOSYN [Concomitant]
  16. SEPTRA DS [Concomitant]
  17. VALIUM [Concomitant]
  18. K-DUR [Concomitant]
  19. A-Z VITAMIN [Concomitant]
  20. COLACE [Concomitant]
  21. CELLCEPT [Concomitant]
  22. MUCINEX DM [Concomitant]
  23. CALCIUM 600 W/D [Concomitant]
  24. PREDNISONE TAB [Concomitant]
  25. IRON [Concomitant]
  26. ACETAMINOPHEN [Concomitant]

REACTIONS (1)
  - DEATH [None]
